FAERS Safety Report 9571345 (Version 1)
Quarter: 2013Q3

REPORT INFORMATION
  Report Type: Spontaneous
  Country: US (occurrence: None)
  Receive Date: 20130927
  Receipt Date: 20130927
  Transmission Date: 20140515
  Serious: Yes (Disabling)
  Sender: FDA-Public Use
  Company Number: None

PATIENT
  Age: 65 Year
  Sex: Female
  Weight: 61.24 kg

DRUGS (1)
  1. CRESTOR [Suspect]
     Indication: BLOOD CHOLESTEROL INCREASED
     Route: 048
     Dates: start: 20100915, end: 20121228

REACTIONS (6)
  - Myalgia [None]
  - Asthenia [None]
  - Pyrexia [None]
  - Weight increased [None]
  - Sleep disorder [None]
  - Drug effect decreased [None]
